FAERS Safety Report 25772097 (Version 2)
Quarter: 2025Q3

REPORT INFORMATION
  Report Type: Spontaneous
  Country: US (occurrence: US)
  Receive Date: 20250908
  Receipt Date: 20250915
  Transmission Date: 20251021
  Serious: No
  Sender: BAUSCH AND LOMB
  Company Number: US-BAUSCHBL-2025BNL015463

PATIENT
  Sex: Female

DRUGS (2)
  1. MIEBO [Suspect]
     Active Substance: PERFLUOROHEXYLOCTANE
     Indication: Dry eye
     Dosage: STARTED USING 1 DROP IN EACH EYE 4 TIMES A DAY
     Route: 047
     Dates: start: 202505, end: 202506
  2. MIEBO [Suspect]
     Active Substance: PERFLUOROHEXYLOCTANE
     Dosage: STARTED USING 1 DROP IN EACH EYE 2 TIMES A DAY
     Route: 047
     Dates: start: 202506

REACTIONS (10)
  - Asthenopia [Not Recovered/Not Resolved]
  - Fatigue [Not Recovered/Not Resolved]
  - Eye irritation [Not Recovered/Not Resolved]
  - Vision blurred [Unknown]
  - Product use issue [Unknown]
  - Intentional product use issue [Unknown]
  - Accidental overdose [Unknown]
  - Product use complaint [Unknown]
  - Product delivery mechanism issue [Unknown]
  - Circumstance or information capable of leading to medication error [Unknown]

NARRATIVE: CASE EVENT DATE: 20250101
